FAERS Safety Report 5452740-3 (Version None)
Quarter: 2007Q3

REPORT INFORMATION
  Report Type: 
  Country: None (occurrence: None)
  Receive Date: 20070914
  Receipt Date: 20070905
  Transmission Date: 20080115
  Serious: Yes (Hospitalization)
  Sender: FDA-Public Use
  Company Number: US-SANOFI-SYNTHELABO-A03200702341

PATIENT
  Sex: Female
  Weight: 65.8 kg

DRUGS (2)
  1. PAXIL [Concomitant]
     Dosage: UNK
     Route: 048
  2. AMBIEN [Suspect]
     Indication: INSOMNIA
     Route: 048
     Dates: start: 19950101

REACTIONS (11)
  - ACCIDENTAL OVERDOSE [None]
  - AMNESIA [None]
  - CONVULSION [None]
  - DEPENDENCE [None]
  - DEPRESSED LEVEL OF CONSCIOUSNESS [None]
  - DRUG WITHDRAWAL SYNDROME [None]
  - EATING DISORDER [None]
  - HYPOVENTILATION [None]
  - ROAD TRAFFIC ACCIDENT [None]
  - SOMNAMBULISM [None]
  - WEIGHT INCREASED [None]
